FAERS Safety Report 5999811-0 (Version None)
Quarter: 2008Q4

REPORT INFORMATION
  Report Type: 
  Country: None (occurrence: None)
  Receive Date: 20081215
  Receipt Date: 20080821
  Transmission Date: 20090506
  Serious: No
  Sender: FDA-Public Use
  Company Number: US-AMGEN-KDL303300

PATIENT
  Sex: Female
  Weight: 90.8 kg

DRUGS (5)
  1. ENBREL [Suspect]
     Indication: RHEUMATOID ARTHRITIS
  2. METHOTREXATE [Concomitant]
     Route: 048
     Dates: start: 19900101
  3. ASPIRIN [Concomitant]
  4. PREDNISONE TAB [Concomitant]
  5. LORATADINE [Concomitant]

REACTIONS (4)
  - ALOPECIA [None]
  - DRY SKIN [None]
  - PAIN OF SKIN [None]
  - PRURITUS [None]
